FAERS Safety Report 7650973-9 (Version None)
Quarter: 2011Q3

REPORT INFORMATION
  Report Type: 
  Country: None (occurrence: None)
  Receive Date: 20110802
  Receipt Date: 20110725
  Transmission Date: 20111222
  Serious: Yes (Hospitalization, Other)
  Sender: FDA-Public Use
  Company Number: US-BAYER-200938011NA

PATIENT
  Age: 56 Year
  Sex: Female
  Weight: 63 kg

DRUGS (31)
  1. TRASYLOL [Suspect]
     Indication: POST PROCEDURAL HAEMATOMA
     Dosage: 200 ML, ONCE, LOADING DOSE
     Route: 042
     Dates: start: 20030304, end: 20030304
  2. NITROSTAT [Concomitant]
     Dosage: 0.4 MG, PRN
     Route: 060
  3. ANCEF [Concomitant]
  4. ZEMURON [Concomitant]
     Dosage: UNK
     Dates: start: 20030304
  5. TRASYLOL [Suspect]
     Dosage: 50 ML, Q1HR, INFUSION
     Route: 042
     Dates: start: 20030304, end: 20030304
  6. TRASYLOL [Suspect]
     Dosage: UNK, POST CABG
     Route: 042
     Dates: start: 20030304, end: 20030304
  7. VERSED [Concomitant]
     Dosage: UNK
     Dates: start: 20030304, end: 20030304
  8. PLAVIX [Concomitant]
     Dosage: 75 MG, QD
     Route: 048
  9. HUMALOG [Concomitant]
     Dosage: 0-12 U, HS
     Route: 058
  10. LISINOPRIL [Concomitant]
     Dosage: 10 MG, QD
  11. PHENYLEPHRINE HCL [Concomitant]
     Dosage: UNK
     Dates: start: 20030304, end: 20030306
  12. RED BLOOD CELLS [Concomitant]
     Dosage: 4 U, UNK
     Dates: start: 20030304
  13. PLATELETS [Concomitant]
     Dosage: 10 U, UNK
     Dates: start: 20030304
  14. TRASYLOL [Suspect]
     Indication: CORONARY ARTERY BYPASS
     Dosage: 1 ML, ONCE, INTIAL TEST DOSE
     Route: 042
     Dates: start: 20030304, end: 20030304
  15. LEVEMIR [Concomitant]
     Dosage: 20 U, Q12HR
     Route: 058
  16. NITROGLYCERIN [Concomitant]
     Dosage: UNK
     Dates: start: 20030304, end: 20030307
  17. EPINEPHRINE [Concomitant]
     Dosage: UNK
     Dates: start: 20030304
  18. PROPOFOL [Concomitant]
     Dosage: UNK
     Dates: start: 20030304, end: 20030304
  19. PAXIL [Concomitant]
     Dosage: 10 MG, QD
     Route: 048
  20. SYNTHROID [Concomitant]
     Dosage: 75 MG, QD
     Route: 048
  21. ZOCOR [Concomitant]
     Dosage: 40 MG, QD
     Route: 048
  22. BENADRYL [Concomitant]
     Dosage: 1 MG, UNK
     Dates: start: 20030304, end: 20030304
  23. DIPRIVAN [Concomitant]
     Dosage: UNK
     Dates: start: 20030304
  24. LASIX [Concomitant]
     Dosage: 20 MG, Q48HR
     Route: 048
  25. HUMALOG [Concomitant]
     Dosage: 3 U, TID
     Route: 058
  26. METOPROLOL TARTRATE [Concomitant]
     Dosage: 50 MG, Q12HR
     Route: 048
  27. NEXIUM [Concomitant]
     Dosage: 40 MG, QD
     Route: 048
  28. NORVASC [Concomitant]
     Dosage: 5 MG, QD
     Route: 048
  29. HEPARIN [Concomitant]
     Dosage: 24000 U, UNK
     Dates: start: 20030304
  30. PROTAMINE [Concomitant]
     Dosage: UNK
     Dates: start: 20030304, end: 20030304
  31. THALLIUM (201 TL) [Concomitant]
     Dosage: UNK
     Dates: start: 20030303

REACTIONS (13)
  - MULTI-ORGAN FAILURE [None]
  - RENAL IMPAIRMENT [None]
  - STRESS [None]
  - ANXIETY [None]
  - UNEVALUABLE EVENT [None]
  - FEAR [None]
  - EMOTIONAL DISTRESS [None]
  - RENAL INJURY [None]
  - PAIN [None]
  - CEREBROVASCULAR ACCIDENT [None]
  - INJURY [None]
  - MYOCARDIAL INFARCTION [None]
  - RENAL FAILURE [None]
